FAERS Safety Report 7302781-6 (Version None)
Quarter: 2011Q1

REPORT INFORMATION
  Report Type: 
  Country: None (occurrence: None)
  Receive Date: 20110218
  Receipt Date: 20110210
  Transmission Date: 20110831
  Serious: Yes (Hospitalization, Other)
  Sender: FDA-Public Use
  Company Number: US-WATSON-2011-01794

PATIENT
  Age: 26 Year

DRUGS (1)
  1. METRONIDAZOLE [Suspect]
     Indication: CROHN'S DISEASE
     Dosage: 2000 MG, DAILY
     Route: 065

REACTIONS (5)
  - GAIT DISTURBANCE [None]
  - ENCEPHALOPATHY [None]
  - JOINT STIFFNESS [None]
  - HYPOAESTHESIA [None]
  - PARAESTHESIA [None]
